FAERS Safety Report 16996074 (Version 3)
Quarter: 2019Q4

REPORT INFORMATION
  Report Type: Report from Study
  Country: None (occurrence: ES)
  Receive Date: 20191105
  Receipt Date: 20191120
  Transmission Date: 20200122
  Serious: Yes (Hospitalization, Other)
  Sender: FDA-Public Use
  Company Number: ES-ABBVIE-19K-144-2987666-00

PATIENT
  Age: 76 Year
  Sex: Female

DRUGS (1)
  1. DUODOPA [Suspect]
     Active Substance: CARBIDOPA\LEVODOPA
     Indication: PARKINSON^S DISEASE
     Route: 050
     Dates: start: 20170206

REACTIONS (10)
  - Discomfort [Recovering/Resolving]
  - Stoma complication [Recovering/Resolving]
  - Stoma site pain [Recovered/Resolved]
  - Stoma complication [Recovering/Resolving]
  - Stoma site haemorrhage [Recovering/Resolving]
  - Stoma site erythema [Recovered/Resolved]
  - Stoma site hypergranulation [Recovered/Resolved]
  - Anaemia [Recovering/Resolving]
  - Haematochezia [Unknown]
  - Feeling abnormal [Unknown]

NARRATIVE: CASE EVENT DATE: 2019
